FAERS Safety Report 7271755-6 (Version None)
Quarter: 2011Q1

REPORT INFORMATION
  Report Type: 
  Country: None (occurrence: None)
  Receive Date: 20110203
  Receipt Date: 20110126
  Transmission Date: 20110831
  Serious: Yes (Death, Hospitalization, Other)
  Sender: FDA-Public Use
  Company Number: BR-ASTELLAS-2011US000436

PATIENT

DRUGS (10)
  1. MYCOPHENOLATE SODIUM [Suspect]
     Dosage: 1080 MG, UID/QD
     Route: 048
     Dates: start: 20090909, end: 20090922
  2. PREDNISONE [Suspect]
     Indication: RENAL TRANSPLANT
     Dosage: 20 MG, UID/QD
     Route: 048
     Dates: start: 20090816, end: 20090917
  3. MYCOPHENOLATE SODIUM [Suspect]
     Indication: RENAL TRANSPLANT
     Dosage: 720 MG, UID/QD
     Route: 048
     Dates: start: 20090831, end: 20090908
  4. PREDNISONE [Suspect]
     Dosage: 7.5 MG, UID/QD
     Route: 048
     Dates: start: 20091124
  5. PREDNISONE [Suspect]
     Dosage: 12.5 MG, UID/QD
     Route: 048
     Dates: start: 20091107, end: 20091114
  6. PREDNISONE [Suspect]
     Dosage: 15 MG, UID/QD
     Route: 048
     Dates: start: 20091101, end: 20091106
  7. PREDNISONE [Suspect]
     Dosage: 10 MG, UID/QD
     Route: 048
     Dates: start: 20091115, end: 20091123
  8. PREDNISONE [Suspect]
     Dosage: 15 MG, UID/QD
     Route: 048
     Dates: start: 20090918, end: 20090919
  9. TACROLIMUS [Suspect]
     Indication: RENAL TRANSPLANT
     Dosage: 9 MG, UID/QD
     Route: 048
     Dates: start: 20090723
  10. PREDNISONE [Suspect]
     Dosage: 20 MG, UID/QD
     Route: 048
     Dates: start: 20091010, end: 20091030

REACTIONS (5)
  - DEEP VEIN THROMBOSIS [None]
  - CYTOMEGALOVIRUS INFECTION [None]
  - STRONGYLOIDIASIS [None]
  - RESPIRATORY TRACT INFECTION [None]
  - ESCHERICHIA SEPSIS [None]
